FAERS Safety Report 9234511 (Version 1)
Quarter: 2013Q2

REPORT INFORMATION
  Report Type: Spontaneous
  Country: US (occurrence: US)
  Receive Date: 20130416
  Receipt Date: 20130416
  Transmission Date: 20140414
  Serious: No
  Sender: FDA-Public Use
  Company Number: US-BANPHARM-20120300

PATIENT
  Age: 79 Year
  Sex: Male
  Weight: 93 kg

DRUGS (3)
  1. ALEVE LIQUID GELS 220 MG [Suspect]
     Dosage: 1 DF, QD,
     Route: 048
     Dates: start: 20121023, end: 20121023
  2. SIMVASTATIN [Concomitant]
  3. TEMAZEPAM [Concomitant]

REACTIONS (1)
  - Nervousness [Recovered/Resolved]
